FAERS Safety Report 14843721 (Version 3)
Quarter: 2018Q4

REPORT INFORMATION
  Report Type: Spontaneous
  Country: IL (occurrence: IL)
  Receive Date: 20180503
  Receipt Date: 20181213
  Transmission Date: 20190204
  Serious: Yes (Other)
  Sender: FDA-Public Use
  Company Number: IL-PFIZER INC-2018177834

PATIENT
  Age: 66 Year
  Sex: Male

DRUGS (1)
  1. ELELYSO [Suspect]
     Active Substance: TALIGLUCERASE ALFA
     Indication: GAUCHER^S DISEASE
     Dosage: 3300 IU PER INFUSION (6600 IU FOR A MONTH)
     Route: 042

REACTIONS (2)
  - Cataract [Unknown]
  - Nasopharyngitis [Unknown]
